FAERS Safety Report 6234479-X (Version None)
Quarter: 2009Q2

REPORT INFORMATION
  Report Type: 
  Country: None (occurrence: None)
  Receive Date: 20090618
  Receipt Date: 20080602
  Transmission Date: 20091009
  Serious: No
  Sender: FDA-Public Use
  Company Number: US-BRISTOL-MYERS SQUIBB COMPANY-14212369

PATIENT
  Sex: Female

DRUGS (2)
  1. SINEMET [Suspect]
     Indication: DYSKINESIA
     Dosage: SINEMET 25MG FOUR YEARS AGO,CURRENTLY 12.5MG EVERY 2 HOURS
  2. REQUIP [Concomitant]

REACTIONS (1)
  - ARTHRALGIA [None]
